FAERS Safety Report 11348658 (Version 1)
Quarter: 2015Q3

REPORT INFORMATION
  Report Type: Spontaneous
  Country: US (occurrence: US)
  Receive Date: 20150806
  Receipt Date: 20150806
  Transmission Date: 20151125
  Serious: No
  Sender: FDA-Public Use
  Company Number: US-PFIZER INC-2015259577

PATIENT
  Sex: Female

DRUGS (2)
  1. GABAPENTIN. [Suspect]
     Active Substance: GABAPENTIN
     Indication: MYALGIA
     Dosage: 300 MG, 3X/DAY
     Dates: start: 201507
  2. GABAPENTIN. [Suspect]
     Active Substance: GABAPENTIN
     Indication: NEURALGIA
     Dosage: UNK
     Dates: start: 201409

REACTIONS (3)
  - Drug ineffective for unapproved indication [Unknown]
  - Somnolence [Unknown]
  - Pain in extremity [Unknown]
